FAERS Safety Report 8205471-0 (Version None)
Quarter: 2012Q1

REPORT INFORMATION
  Report Type: 
  Country: None (occurrence: None)
  Receive Date: 20120313
  Receipt Date: 20120306
  Transmission Date: 20120608
  Serious: Yes (Hospitalization)
  Sender: FDA-Public Use
  Company Number: FR-BRISTOL-MYERS SQUIBB COMPANY-16442451

PATIENT
  Age: 53 Year
  Sex: Female

DRUGS (6)
  1. CELEBREX [Concomitant]
     Dosage: 1 IN MRN AND 1 IN NOON
     Dates: start: 20111024, end: 20111026
  2. ATORVASTATIN [Concomitant]
  3. COLPOTROPHINE [Suspect]
     Dosage: VAGINA CAPSULE ADMINISTERED ON 21,25 + 30OCT11
     Route: 067
     Dates: start: 20111021, end: 20111030
  4. FUNGIZONE [Suspect]
     Indication: LOCALISED INFECTION
     Dosage: 2 COFFEE SPOONS-MRNG AND 2 COFFEE SPOONS-EVE.
     Route: 048
     Dates: start: 20111024, end: 20111029
  5. CLARITHROMYCIN [Suspect]
     Indication: LOCALISED INFECTION
     Route: 048
     Dates: start: 20111024, end: 20111029
  6. ACETAMINOPHEN [Concomitant]
     Indication: PAIN

REACTIONS (1)
  - ANAPHYLACTIC SHOCK [None]
